FAERS Safety Report 9293571 (Version 1)
Quarter: 2013Q2

REPORT INFORMATION
  Report Type: Spontaneous
  Country: IT (occurrence: IT)
  Receive Date: 20130516
  Receipt Date: 20130516
  Transmission Date: 20140414
  Serious: Yes (Other)
  Sender: FDA-Public Use
  Company Number: IT-GLAXOSMITHKLINE-B0892302A

PATIENT
  Age: 80 Year
  Sex: Female

DRUGS (10)
  1. ARIXTRA [Suspect]
     Indication: THROMBOSIS PROPHYLAXIS
     Route: 058
     Dates: start: 20130101, end: 20130309
  2. MIRTAZAPINA [Concomitant]
  3. ALPRAZOLAM [Concomitant]
  4. CORDARONE [Concomitant]
  5. FOLINA [Concomitant]
  6. LASIX [Concomitant]
  7. LANSOX [Concomitant]
  8. ZYPREXA [Concomitant]
  9. ALENDROS [Concomitant]
  10. DISIPAL [Concomitant]

REACTIONS (1)
  - Haematochezia [Recovering/Resolving]
